FAERS Safety Report 6304746-X (Version None)
Quarter: 2009Q3

REPORT INFORMATION
  Report Type: 
  Country: None (occurrence: None)
  Receive Date: 20090811
  Receipt Date: 20090807
  Transmission Date: 20100115
  Serious: Yes (Congenital Anomaly)
  Sender: FDA-Public Use
  Company Number: B0478331B

PATIENT
  Weight: 2.9 kg

DRUGS (3)
  1. TRIZIVIR [Suspect]
     Indication: ANTIVIRAL PROPHYLAXIS
     Dosage: 750MG TWICE PER DAY
     Dates: start: 20070426, end: 20070702
  2. MULTI-VITAMINS [Concomitant]
  3. FERROUS SULFATE TAB [Concomitant]

REACTIONS (4)
  - ANXIETY [None]
  - DRUG EXPOSURE DURING PREGNANCY [None]
  - INTRA-UTERINE DEATH [None]
  - POLYDACTYLY [None]
